FAERS Safety Report 9170410 (Version 1)
Quarter: 2013Q1

REPORT INFORMATION
  Report Type: Spontaneous
  Country: KR (occurrence: None)
  Receive Date: 20130311
  Receipt Date: 20130311
  Transmission Date: 20140127
  Serious: Yes (Other)
  Sender: FDA-Public Use
  Company Number: NSR_01050_2013

PATIENT
  Age: 67 Year
  Sex: Male

DRUGS (4)
  1. TRAMADOL (TRAMADOL) [Suspect]
     Indication: PAIN
  2. PREGABALIN [Concomitant]
  3. OXYCODONE [Concomitant]
  4. FENTANYL [Concomitant]

REACTIONS (4)
  - Hyperhidrosis [None]
  - Chills [None]
  - Rhinorrhoea [None]
  - Hyperaesthesia [None]
